FAERS Safety Report 4343081-6 (Version None)
Quarter: 2004Q2

REPORT INFORMATION
  Report Type: 
  Country: None (occurrence: None)
  Receive Date: 20040419
  Receipt Date: 20040406
  Transmission Date: 20050107
  Serious: No
  Sender: FDA-Public Use
  Company Number: A02200401277

PATIENT
  Age: 70 Year
  Sex: Female

DRUGS (3)
  1. NEGRAM- (NALIDIXIC ACID) - TABLET- 1 G [Suspect]
     Indication: CYSTITIS
     Dosage: 1 G BID ORAL
     Route: 048
     Dates: start: 20040301, end: 20040301
  2. DICLOFENAC SODIUM [Concomitant]
  3. THIOCOLCHICOSIDE [Concomitant]

REACTIONS (1)
  - TENDON RUPTURE [None]
